FAERS Safety Report 4819712-0 (Version None)
Quarter: 2005Q4

REPORT INFORMATION
  Report Type: 
  Country: None (occurrence: None)
  Receive Date: 20051102
  Receipt Date: 20051102
  Transmission Date: 20060501
  Serious: Yes (Life-Threatening, Hospitalization)
  Sender: FDA-Public Use
  Company Number: None

PATIENT
  Age: 66 Year
  Sex: Male
  Weight: 131.0895 kg

DRUGS (4)
  1. METRONIDAZOLE [Suspect]
     Indication: BACTERIAL INFECTION
     Dosage: 500 MG
  2. METRONIDAZOLE [Suspect]
     Indication: GASTRIC INFECTION
     Dosage: 500 MG
  3. BIAXIN [Suspect]
     Indication: BACTERIAL INFECTION
     Dosage: 500MG
  4. BIAXIN [Suspect]
     Indication: GASTRIC INFECTION
     Dosage: 500MG

REACTIONS (1)
  - THROAT TIGHTNESS [None]
